FAERS Safety Report 5786075-6 (Version None)
Quarter: 2008Q2

REPORT INFORMATION
  Report Type: 
  Country: None (occurrence: None)
  Receive Date: 20080624
  Receipt Date: 20070524
  Transmission Date: 20081010
  Serious: No
  Sender: FDA-Public Use
  Company Number: US-ASTRAZENECA-2007UW12818

PATIENT
  Sex: Female

DRUGS (6)
  1. PULMICORT [Suspect]
     Indication: ASTHMA
     Route: 055
     Dates: start: 20070401
  2. SYNTHROID [Concomitant]
  3. ZINC [Concomitant]
  4. SPIRIVA [Concomitant]
  5. PREDNISONE [Concomitant]
  6. SINGULAIR [Concomitant]

REACTIONS (2)
  - GLOSSODYNIA [None]
  - TONGUE DISORDER [None]
